FAERS Safety Report 17917665 (Version 3)
Quarter: 2021Q2

REPORT INFORMATION
  Report Type: Spontaneous
  Country: US (occurrence: US)
  Receive Date: 20200619
  Receipt Date: 20210625
  Transmission Date: 20210717
  Serious: Yes (Other)
  Sender: FDA-Public Use
  Company Number: US-GILEAD-2020-0473759

PATIENT
  Age: 60 Year
  Sex: Male
  Weight: 76.19 kg

DRUGS (65)
  1. ACETAMINOPHEN. [Concomitant]
     Active Substance: ACETAMINOPHEN
  2. DYAZIDE [Concomitant]
     Active Substance: HYDROCHLOROTHIAZIDE\TRIAMTERENE
  3. VANCOMYCIN [Concomitant]
     Active Substance: VANCOMYCIN
  4. PEPCID [Concomitant]
     Active Substance: FAMOTIDINE
  5. PEPTO BISMOL [BISMUTH SUBSALICYLATE;CALCIUM CARBONATE] [Concomitant]
     Active Substance: BISMUTH SUBSALICYLATE\CALCIUM CARBONATE
  6. AMPICILLIN [Concomitant]
     Active Substance: AMPICILLIN
  7. FLEET LAXATIVE [Concomitant]
  8. RANITIDINE. [Concomitant]
     Active Substance: RANITIDINE
  9. TACROLIMUS. [Concomitant]
     Active Substance: TACROLIMUS
  10. ZIAGEN [Concomitant]
     Active Substance: ABACAVIR SULFATE
  11. ATIVAN [Concomitant]
     Active Substance: LORAZEPAM
  12. ATENOLOL. [Concomitant]
     Active Substance: ATENOLOL
  13. HYDROQUINONE. [Concomitant]
     Active Substance: HYDROQUINONE
  14. LIPITOR [Concomitant]
     Active Substance: ATORVASTATIN CALCIUM
  15. NEURONTIN [Concomitant]
     Active Substance: GABAPENTIN
  16. PREDNISOLONE. [Concomitant]
     Active Substance: PREDNISOLONE
  17. PREDNISONE. [Concomitant]
     Active Substance: PREDNISONE
  18. PROCHLORPERAZINE. [Concomitant]
     Active Substance: PROCHLORPERAZINE
  19. TERBINAFINE. [Concomitant]
     Active Substance: TERBINAFINE
  20. KEFLEX [Concomitant]
     Active Substance: CEPHALEXIN
  21. MAGNESIUM [Concomitant]
     Active Substance: MAGNESIUM
  22. ATRIPLA [Suspect]
     Active Substance: EFAVIRENZ\EMTRICITABINE\TENOFOVIR DISOPROXIL FUMARATE
     Indication: HIV INFECTION
     Dosage: UNK
     Route: 048
     Dates: start: 200910, end: 20120314
  23. LASIX [Concomitant]
     Active Substance: FUROSEMIDE
  24. AMOXICILLIN. [Concomitant]
     Active Substance: AMOXICILLIN
  25. METHOTREXATE. [Concomitant]
     Active Substance: METHOTREXATE
  26. PANTOPRAZOLE [Concomitant]
     Active Substance: PANTOPRAZOLE
  27. IBUPROFEN. [Concomitant]
     Active Substance: IBUPROFEN
  28. LISINOPRIL. [Concomitant]
     Active Substance: LISINOPRIL
  29. COREG [Concomitant]
     Active Substance: CARVEDILOL
  30. NORVASC [Concomitant]
     Active Substance: AMLODIPINE BESYLATE
  31. ATORVASTATIN [Concomitant]
     Active Substance: ATORVASTATIN
  32. SUSTIVA [Concomitant]
     Active Substance: EFAVIRENZ
  33. ZOFRAN [Concomitant]
     Active Substance: ONDANSETRON HYDROCHLORIDE
  34. NAPROXEN. [Concomitant]
     Active Substance: NAPROXEN
  35. TRETINOIN. [Concomitant]
     Active Substance: TRETINOIN
  36. MYCOPHENOLATE [Concomitant]
     Active Substance: MYCOPHENOLIC ACID
  37. VIREAD [Suspect]
     Active Substance: TENOFOVIR DISOPROXIL FUMARATE
     Indication: HIV INFECTION
     Dosage: UNK
     Route: 048
     Dates: start: 20031206, end: 20040407
  38. ASPIRIN [ACETYLSALICYLIC ACID] [Concomitant]
     Active Substance: ASPIRIN
  39. SIMVASTATIN. [Concomitant]
     Active Substance: SIMVASTATIN
  40. COLCHICINE. [Concomitant]
     Active Substance: COLCHICINE
  41. DARBEPOETIN ALFA [Concomitant]
     Active Substance: DARBEPOETIN ALFA
  42. CORTISONE [Concomitant]
     Active Substance: CORTISONE
  43. FLOMAX [Concomitant]
     Active Substance: TAMSULOSIN HYDROCHLORIDE
  44. LOVENOX [LEVOFLOXACIN] [Concomitant]
     Active Substance: LEVOFLOXACIN
  45. TIVICAY [Concomitant]
     Active Substance: DOLUTEGRAVIR SODIUM
  46. KENALOG [Concomitant]
     Active Substance: TRIAMCINOLONE ACETONIDE
  47. TRAZODONE [Concomitant]
     Active Substance: TRAZODONE HYDROCHLORIDE
  48. TRIAMTERENE AND HYDROCHLOROTHIAZIDE [Concomitant]
     Active Substance: HYDROCHLOROTHIAZIDE\TRIAMTERENE
  49. OXYCODONE [Concomitant]
     Active Substance: OXYCODONE
  50. MELATONIN [Concomitant]
     Active Substance: MELATONIN
  51. TRUVADA [Suspect]
     Active Substance: EMTRICITABINE\TENOFOVIR DISOPROXIL FUMARATE
     Indication: HIV INFECTION
     Dosage: UNK
     Route: 048
     Dates: start: 200510, end: 200703
  52. CHOLECALCIFEROL [Concomitant]
     Active Substance: CHOLECALCIFEROL
  53. VIAGRA [Concomitant]
     Active Substance: SILDENAFIL CITRATE
  54. BACTRIM [Concomitant]
     Active Substance: SULFAMETHOXAZOLE\TRIMETHOPRIM
  55. CYCLOPHOSPHAMIDE. [Concomitant]
     Active Substance: CYCLOPHOSPHAMIDE
  56. DEXAMETHASONE. [Concomitant]
     Active Substance: DEXAMETHASONE
  57. HEPARIN [Concomitant]
     Active Substance: HEPARIN SODIUM
  58. OMEPRAZOLE. [Concomitant]
     Active Substance: OMEPRAZOLE
  59. EMTRIVA [Concomitant]
     Active Substance: EMTRICITABINE
  60. EPZICOM [Concomitant]
     Active Substance: ABACAVIR SULFATE\LAMIVUDINE
  61. VIDEX [Concomitant]
     Active Substance: DIDANOSINE
  62. BISACODYL. [Concomitant]
     Active Substance: BISACODYL
  63. HYDROCODONE/ACETAMINOPHEN [Concomitant]
     Active Substance: ACETAMINOPHEN\HYDROCODONE
  64. BENZOYL PEROXIDE. [Concomitant]
     Active Substance: BENZOYL PEROXIDE
  65. PROTONIX [OMEPRAZOLE] [Concomitant]
     Active Substance: OMEPRAZOLE

REACTIONS (6)
  - Bone density decreased [Unknown]
  - End stage renal disease [Not Recovered/Not Resolved]
  - Nephrogenic anaemia [Unknown]
  - Nephropathy [Unknown]
  - Renal failure [Unknown]
  - Osteoporosis [Not Recovered/Not Resolved]

NARRATIVE: CASE EVENT DATE: 20120213
